FAERS Safety Report 21667054 (Version 1)
Quarter: 2022Q4

REPORT INFORMATION
  Report Type: Spontaneous
  Country: GB (occurrence: GB)
  Receive Date: 20221201
  Receipt Date: 20221201
  Transmission Date: 20230113
  Serious: Yes (Other)
  Sender: FDA-Public Use
  Company Number: None

PATIENT
  Sex: Female

DRUGS (1)
  1. SERTRALINE [Suspect]
     Active Substance: SERTRALINE HYDROCHLORIDE
     Indication: Postpartum anxiety
     Dosage: 50MG ONCE S DAY
     Dates: end: 20221117

REACTIONS (2)
  - Night sweats [Unknown]
  - Hyperhidrosis [Not Recovered/Not Resolved]
